FAERS Safety Report 7782495-9 (Version None)
Quarter: 2011Q3

REPORT INFORMATION
  Report Type: 
  Country: None (occurrence: None)
  Receive Date: 20110928
  Receipt Date: 20110915
  Transmission Date: 20111222
  Serious: Yes (Other)
  Sender: FDA-Public Use
  Company Number: US-RANBAXY-2011RR-48282

PATIENT
  Sex: Female

DRUGS (5)
  1. LEVAQUIN [Suspect]
     Indication: KIDNEY INFECTION
  2. LEVAQUIN [Suspect]
     Dosage: UNK
     Route: 048
     Dates: start: 20100109, end: 20100110
  3. CIPROFLOXACIN [Suspect]
     Indication: KIDNEY INFECTION
     Dosage: UNK
     Route: 065
     Dates: start: 20100104, end: 20100108
  4. LEVAQUIN [Suspect]
  5. LEVAQUIN [Suspect]
     Indication: CYSTITIS
     Dosage: UNK
     Route: 042
     Dates: start: 20100108, end: 20100109

REACTIONS (7)
  - ABASIA [None]
  - TENDONITIS [None]
  - SWELLING [None]
  - ARTHRITIS [None]
  - TENDON RUPTURE [None]
  - EPICONDYLITIS [None]
  - MOVEMENT DISORDER [None]
